FAERS Safety Report 16398412 (Version 1)
Quarter: 2019Q2

REPORT INFORMATION
  Report Type: Spontaneous
  Country: US (occurrence: US)
  Receive Date: 20190606
  Receipt Date: 20190606
  Transmission Date: 20190711
  Serious: No
  Sender: FDA-Public Use
  Company Number: US-GLAXOSMITHKLINE-US2019101492

PATIENT
  Age: 34 Year
  Sex: Female

DRUGS (1)
  1. ABREVA [Suspect]
     Active Substance: DOCOSANOL
     Indication: ORAL HERPES
     Dosage: UNK,(IT 2-3 TIMES A DAY FOR 4 DAYS )
     Route: 061
     Dates: start: 2006

REACTIONS (5)
  - Oral herpes [Recovered/Resolved]
  - Incorrect product administration duration [Unknown]
  - Condition aggravated [Recovered/Resolved]
  - Blister [Recovered/Resolved]
  - Inappropriate schedule of product administration [Unknown]
